FAERS Safety Report 17211010 (Version 3)
Quarter: 2021Q3

REPORT INFORMATION
  Report Type: Report from Study
  Country: US (occurrence: US)
  Receive Date: 20191227
  Receipt Date: 20210825
  Transmission Date: 20211014
  Serious: Yes (Life-Threatening, Hospitalization)
  Sender: FDA-Public Use
  Company Number: US-BAXTER-2019BAX026050

PATIENT
  Age: 3 Year
  Sex: Male
  Weight: 21.6 kg

DRUGS (31)
  1. CYCLOPHOSPHAMIDE FOR INJECTION, USP [Suspect]
     Active Substance: CYCLOPHOSPHAMIDE
     Indication: ACUTE LYMPHOCYTIC LEUKAEMIA
     Dosage: LAST DOSE PRIOR TO CONSTIPATION AND DEHYDRATION SECOND EPISODES, HYPOGLYCEMIA, DAY 29; FIRST DOSE
     Route: 042
     Dates: start: 20190924, end: 20190924
  2. INCB018424 [Suspect]
     Active Substance: RUXOLITINIB
     Dosage: TABLET; LAST DOSE PRIOR TO SAES OF CONSTIPATION 1ST EPISODE,DEHYDRATION 2ND EPISODE, HYPOGLYCEMIA
     Route: 048
     Dates: start: 20191008, end: 20191008
  3. METHOTREXATE. [Suspect]
     Active Substance: METHOTREXATE
     Indication: ACUTE LYMPHOCYTIC LEUKAEMIA
     Dosage: FIRST DOSE; STARTING DOSE 100 MG/M2 AND ESCALATE BY 50MG/M2/DOSE ? DAY 1, 11, 21, 31, 41
     Route: 042
     Dates: start: 20191107, end: 20191206
  4. INCB018424 [Suspect]
     Active Substance: RUXOLITINIB
     Dosage: TABLET; DAYS 1?10, 21?30, AND 41?50
     Route: 048
     Dates: start: 20191127, end: 20191206
  5. METHOTREXATE. [Suspect]
     Active Substance: METHOTREXATE
     Indication: ACUTE LYMPHOCYTIC LEUKAEMIA
     Dosage: DAYS 1, 29 AND 36; FIRST DOSE
     Route: 037
     Dates: start: 20190821
  6. THIOGUANINE [Suspect]
     Active Substance: THIOGUANINE
     Indication: ACUTE LYMPHOCYTIC LEUKAEMIA
     Dosage: TABLET; DAYS 29?42; FIRST DOSE
     Route: 048
     Dates: start: 20190924
  7. THIOGUANINE [Suspect]
     Active Substance: THIOGUANINE
     Dosage: TABLET; LAST DOSE PRIOR TO SAES
     Route: 048
     Dates: start: 20191007, end: 20191007
  8. LORAZEPAM. [Concomitant]
     Active Substance: LORAZEPAM
     Indication: PRODUCT USED FOR UNKNOWN INDICATION
     Route: 065
     Dates: start: 20191209, end: 20191209
  9. DEXAMETHASONE. [Suspect]
     Active Substance: DEXAMETHASONE
     Indication: ACUTE LYMPHOCYTIC LEUKAEMIA
     Dosage: TABLET; DAYS 1?7 AND 15?21; FIRST DOSE
     Route: 048
     Dates: start: 20190821
  10. VINCRISTINE [Suspect]
     Active Substance: VINCRISTINE
     Dosage: LAST DOSE PRIOR TO SAES OF MUCOSITIS, DEHYDRATION 1ST EPISODE, CONSTIPATION (1ST, 3RD EPISODE), ANOR
     Route: 042
     Dates: start: 20191127, end: 20191127
  11. ASPARAGINASE [Suspect]
     Active Substance: ASPARAGINASE
     Dosage: DAYS 2 AND 22 PER PROTOCOL; THREE TIMES PER WEEK X2 WEEKS FOR EACH DOSE
     Route: 030
     Dates: start: 20191108
  12. ASPARAGINASE [Suspect]
     Active Substance: ASPARAGINASE
     Dosage: LAST DOSE PRIOR TO SAES OF CONSTIPATION2ND EPISODE, DEHYDRATION 2ND EPISODE,AND HYPOGLYCEMIA
     Route: 030
     Dates: start: 20191017, end: 20191017
  13. INCB018424 [Suspect]
     Active Substance: RUXOLITINIB
     Indication: ACUTE LYMPHOCYTIC LEUKAEMIA
     Dosage: TABLET; DAY 1?14 AND 29?42; FIRST DOSE
     Route: 048
     Dates: start: 20190821
  14. ASPARAGINASE [Suspect]
     Active Substance: ASPARAGINASE
     Indication: ACUTE LYMPHOCYTIC LEUKAEMIA
     Dosage: THREE TIMES PER WEEK X2 WEEKS; FIRST DOSE
     Route: 030
     Dates: start: 20190827
  15. METHOTREXATE. [Suspect]
     Active Substance: METHOTREXATE
     Dosage: LAST DOSE PRIOR TO SAES OF CONSTIPATION2ND EPISODE, DEHYDRATION 2ND EPISODE,AND HYPOGLYCEMIA
     Route: 037
     Dates: start: 20191002, end: 20191002
  16. INCB018424 [Suspect]
     Active Substance: RUXOLITINIB
     Dosage: TABLET; DAY 1?10 AND 21?30 AND 41?50
     Route: 048
     Dates: start: 20191220
  17. VINCRISTINE [Suspect]
     Active Substance: VINCRISTINE
     Indication: ACUTE LYMPHOCYTIC LEUKAEMIA
     Dosage: DAYS 43 AND 50; FIRST DOSE
     Route: 042
     Dates: start: 20190821
  18. VINCRISTINE [Suspect]
     Active Substance: VINCRISTINE
     Dosage: DAYS 1, 11, 21, 31, AND 41
     Route: 042
     Dates: start: 20191107, end: 20191206
  19. CYTARABINE. [Suspect]
     Active Substance: CYTARABINE
     Indication: ACUTE LYMPHOCYTIC LEUKAEMIA
     Dosage: DAYS 29?32 AND 36?39; FIRST DOSE
     Route: 042
     Dates: start: 20190924
  20. VINCRISTINE [Suspect]
     Active Substance: VINCRISTINE
     Dosage: LAST DOSE PRIOR TO SAES OF CONSTIPATION2ND EPISODE, DEHYDRATION 2ND EPISODE,AND HYPOGLYCEMIA
     Route: 042
     Dates: start: 20191015, end: 20191015
  21. VINCRISTINE [Suspect]
     Active Substance: VINCRISTINE
     Dosage: DAY 1,11, 21, 31 AND 41
     Route: 042
     Dates: start: 20191211
  22. ASPARAGINASE [Suspect]
     Active Substance: ASPARAGINASE
     Dosage: LAST DOSE PRIOR TO SAES OF MUCOSITIS, DEHYDRATION 1ST EPISODE, CONSTIPATION (1ST, 3RD EPISODE), ANOR
     Route: 030
     Dates: start: 20191209, end: 20191209
  23. METHOTREXATE. [Suspect]
     Active Substance: METHOTREXATE
     Dosage: LAST DOSE PRIOR TO SAES OF MUCOSITIS, DEHYDRATION 1ST EPISODE, CONSTIPATION (1ST, 3RD EPISODE), ANOR
     Route: 037
     Dates: start: 20191107, end: 20191107
  24. METHOTREXATE. [Suspect]
     Active Substance: METHOTREXATE
     Dosage: LAST DOSE PRIOR TO SAES
     Route: 042
     Dates: start: 20191127, end: 20191127
  25. DEXAMETHASONE. [Suspect]
     Active Substance: DEXAMETHASONE
     Dosage: TABLET; LAST DOSE PRIOR TO SAES
     Route: 048
     Dates: start: 20190910, end: 20190910
  26. METHOTREXATE. [Suspect]
     Active Substance: METHOTREXATE
     Dosage: DAYS 1 AND 31
     Route: 037
     Dates: start: 20191107, end: 20191206
  27. METHOTREXATE. [Suspect]
     Active Substance: METHOTREXATE
     Dosage: DAYS 1 AND 31
     Route: 037
     Dates: start: 20191211
  28. CYTARABINE. [Suspect]
     Active Substance: CYTARABINE
     Dosage: THE LAST DOSE PRIOR TO THE SAES CONSTIPATION 1ST EPISODE,DEHYDRATION (SECOND EPISODE),AND HYPOGLYCEM
     Route: 042
     Dates: start: 20191005, end: 20191005
  29. METHOTREXATE. [Suspect]
     Active Substance: METHOTREXATE
     Dosage: STARTING DOSE 100 MG/M2 AND ESCALATE BY 50MG/M2/DOSE ? DAY 1, 11, 21, 31, 41
     Route: 042
     Dates: start: 20191211
  30. BACTRIM [Concomitant]
     Active Substance: SULFAMETHOXAZOLE\TRIMETHOPRIM
     Indication: PRODUCT USED FOR UNKNOWN INDICATION
     Route: 065
     Dates: start: 20191209
  31. CYPROHEPTADINE. [Concomitant]
     Active Substance: CYPROHEPTADINE
     Indication: PRODUCT USED FOR UNKNOWN INDICATION
     Route: 065
     Dates: start: 20191209

REACTIONS (11)
  - Lethargy [Recovered/Resolved]
  - Constipation [Unknown]
  - Dehydration [Recovered/Resolved]
  - Hypoglycaemia [Recovered/Resolved]
  - Abdominal pain [Recovering/Resolving]
  - Constipation [Recovered/Resolved]
  - Decreased appetite [Recovering/Resolving]
  - Vomiting [Recovered/Resolved]
  - Constipation [Recovered/Resolved]
  - Stomatitis [Recovered/Resolved]
  - Dehydration [Recovered/Resolved]

NARRATIVE: CASE EVENT DATE: 20191015
